FAERS Safety Report 19813032 (Version 1)
Quarter: 2021Q3

REPORT INFORMATION
  Report Type: Spontaneous
  Country: US (occurrence: US)
  Receive Date: 20210907
  Receipt Date: 20210907
  Transmission Date: 20211014
  Serious: No
  Sender: FDA-Public Use
  Company Number: None

PATIENT
  Age: 51 Year
  Sex: Male
  Weight: 142 kg

DRUGS (1)
  1. TRAZODONE (TRAZODONE HCL 100MG TAB) [Suspect]
     Active Substance: TRAZODONE HYDROCHLORIDE
     Indication: INSOMNIA
     Route: 048
     Dates: start: 20210426, end: 20210429

REACTIONS (14)
  - Dizziness [None]
  - Palpitations [None]
  - Diplopia [None]
  - Gait disturbance [None]
  - Asthenia [None]
  - Headache [None]
  - Fall [None]
  - Tremor [None]
  - Pain [None]
  - Angioedema [None]
  - Chest pain [None]
  - Hypotension [None]
  - Orthostatic hypotension [None]
  - Discomfort [None]

NARRATIVE: CASE EVENT DATE: 20210427
